FAERS Safety Report 9447430 (Version 1)
Quarter: 2013Q3

REPORT INFORMATION
  Report Type: Spontaneous
  Country: DE (occurrence: None)
  Receive Date: 20130805
  Receipt Date: 20130805
  Transmission Date: 20140515
  Serious: Yes (Other)
  Sender: FDA-Public Use
  Company Number: GER/GER/13/0033848

PATIENT
  Sex: Female

DRUGS (15)
  1. AMLODIPINE (AMLODIPINE) [Suspect]
     Indication: PRODUCT USED FOR UNKNOWN INDICATION
  2. RAMIPRIL (RAMIPRIL) [Suspect]
     Indication: PRODUCT USED FOR UNKNOWN INDICATION
  3. METOPROLOL (METOPROLOL) [Suspect]
     Indication: PRODUCT USED FOR UNKNOWN INDICATION
  4. SIMVASTATIN (SIMVASTATIN) [Suspect]
     Indication: PRODUCT USED FOR UNKNOWN INDICATION
  5. METFORMIN (METFORMIN) [Suspect]
     Indication: PRODUCT USED FOR UNKNOWN INDICATION
  6. VENLAFAXINE (VENLAFAXINE) [Suspect]
     Indication: PRODUCT USED FOR UNKNOWN INDICATION
  7. HYDROCHLOROTHIAZIDE (HYDROCHLOROTHIAZIDE) [Suspect]
     Indication: PRODUCT USED FOR UNKNOWN INDICATION
  8. ALLOPURINOL [Suspect]
     Indication: PRODUCT USED FOR UNKNOWN INDICATION
  9. PARACETAMOL (PARACETAMOL) [Suspect]
     Indication: PRODUCT USED FOR UNKNOWN INDICATION
  10. TILIDINE [Suspect]
     Indication: PRODUCT USED FOR UNKNOWN INDICATION
  11. NALOXONE [Suspect]
     Indication: PRODUCT USED FOR UNKNOWN INDICATION
  12. ALPHA-METHYLDOPA [Concomitant]
     Indication: PRODUCT USED FOR UNKNOWN INDICATION
  13. ACETYLSALICYLIC ACID (ACETYLSALICYLIC ACID) [Suspect]
     Indication: PRODUCT USED FOR UNKNOWN INDICATION
  14. INSULIN (INSULIN) [Suspect]
     Indication: PRODUCT USED FOR UNKNOWN INDICATION
  15. INSULIN LISPRO (INSULIN LISPRO) [Suspect]
     Indication: PRODUCT USED FOR UNKNOWN INDICATION

REACTIONS (4)
  - Caesarean section [None]
  - Pre-eclampsia [None]
  - Maternal drugs affecting foetus [None]
  - Pulmonary artery stenosis [None]
